FAERS Safety Report 5219600-4 (Version None)
Quarter: 2007Q1

REPORT INFORMATION
  Report Type: 
  Country: None (occurrence: None)
  Receive Date: 20070124
  Receipt Date: 20070124
  Transmission Date: 20070707
  Serious: Yes (Hospitalization)
  Sender: FDA-Public Use
  Company Number: None

PATIENT
  Age: 15 Year
  Sex: Female
  Weight: 48.5349 kg

DRUGS (5)
  1. TRAZODONE HCL [Suspect]
     Indication: ANXIETY
     Dosage: ONE 50MG PILL EVENINGS PO
     Route: 048
     Dates: start: 20061206, end: 20070118
  2. TRAZODONE HCL [Suspect]
     Indication: DEPRESSION
     Dosage: ONE 50MG PILL EVENINGS PO
     Route: 048
     Dates: start: 20061206, end: 20070118
  3. TRAZODONE HCL [Suspect]
     Indication: INSOMNIA
     Dosage: ONE 50MG PILL EVENINGS PO
     Route: 048
     Dates: start: 20061206, end: 20070118
  4. LEXAPRO [Suspect]
     Indication: ANXIETY
     Dosage: ONE 10MG PILL MORNINGS PO
     Route: 048
     Dates: start: 20061206
  5. LEXAPRO [Suspect]
     Indication: DEPRESSION
     Dosage: ONE 10MG PILL MORNINGS PO
     Route: 048
     Dates: start: 20061206

REACTIONS (1)
  - LOSS OF CONSCIOUSNESS [None]
